FAERS Safety Report 14338862 (Version 2)
Quarter: 2018Q1

REPORT INFORMATION
  Report Type: Spontaneous
  Country: HR (occurrence: HR)
  Receive Date: 20171229
  Receipt Date: 20180109
  Transmission Date: 20180509
  Serious: Yes (Other)
  Sender: FDA-Public Use
  Company Number: HR-GILEAD-2017-0312539

PATIENT
  Age: 64 Year
  Sex: Male
  Weight: 107 kg

DRUGS (16)
  1. SANDIMMUN NEORAL [Concomitant]
     Active Substance: CYCLOSPORINE
     Indication: RENAL TRANSPLANT
     Route: 048
     Dates: start: 20080919
  2. EPOETIN ZETA [Concomitant]
     Active Substance: ERYTHROPOIETIN
     Route: 065
  3. FOLACIN                            /00024201/ [Concomitant]
     Active Substance: FOLIC ACID
     Route: 048
  4. SORBISTERIT [Concomitant]
     Route: 065
  5. EBRANTIL                           /00631801/ [Concomitant]
     Active Substance: URAPIDIL
     Route: 048
  6. DECORTIN [Concomitant]
     Active Substance: PREDNISONE
     Route: 048
     Dates: start: 20080919
  7. PEPTORAN                           /00550801/ [Concomitant]
     Route: 048
  8. CONCOR [Concomitant]
     Active Substance: BISOPROLOL FUMARATE
     Route: 048
  9. VALSACOR [Concomitant]
     Active Substance: VALSARTAN
     Route: 048
  10. CELLCEPT [Concomitant]
     Active Substance: MYCOPHENOLATE MOFETIL\MYCOPHENOLATE MOFETIL HYDROCHLORIDE
     Indication: RENAL TRANSPLANT
     Route: 048
     Dates: start: 20080919
  11. EUTHYROX [Concomitant]
     Active Substance: LEVOTHYROXINE SODIUM
     Route: 048
  12. ROCALTROL [Concomitant]
     Active Substance: CALCITRIOL
     Route: 048
  13. LASIX [Concomitant]
     Active Substance: FUROSEMIDE
     Route: 048
  14. HELEX [Concomitant]
     Active Substance: ALPRAZOLAM
     Route: 048
  15. EPCLUSA [Suspect]
     Active Substance: SOFOSBUVIR\VELPATASVIR
     Indication: HEPATITIS C
     Dosage: 1 DF, QD
     Route: 048
     Dates: start: 20170621, end: 20170920
  16. NOVONORM [Concomitant]
     Active Substance: REPAGLINIDE
     Route: 048

REACTIONS (3)
  - Cytomegalovirus infection [Recovering/Resolving]
  - Cytomegalovirus colitis [Recovering/Resolving]
  - Diarrhoea [Recovering/Resolving]

NARRATIVE: CASE EVENT DATE: 20170801
